FAERS Safety Report 10672399 (Version 1)
Quarter: 2014Q4

REPORT INFORMATION
  Report Type: Report from Study
  Country: US (occurrence: US)
  Receive Date: 20141223
  Receipt Date: 20141223
  Transmission Date: 20150529
  Serious: Yes (Other)
  Sender: FDA-Public Use
  Company Number: US-SA-2014SA174048

PATIENT
  Sex: Male

DRUGS (1)
  1. LANTUS [Suspect]
     Active Substance: INSULIN GLARGINE
     Indication: DIABETES MELLITUS
     Dosage: DOSE:20 UNIT(S)
     Route: 065

REACTIONS (6)
  - Traumatic lung injury [Unknown]
  - Heart injury [Unknown]
  - Renal injury [Unknown]
  - Loss of consciousness [Unknown]
  - Road traffic accident [Unknown]
  - Brain injury [Unknown]
